FAERS Safety Report 26194075 (Version 1)
Quarter: 2025Q4

REPORT INFORMATION
  Report Type: Spontaneous
  Country: US (occurrence: US)
  Receive Date: 20251224
  Receipt Date: 20251224
  Transmission Date: 20260117
  Serious: Yes (Other)
  Sender: NOVO NORDISK
  Company Number: US-NOVOPROD-1583475

PATIENT
  Sex: Male

DRUGS (1)
  1. NOVOLIN 70/30 [Suspect]
     Active Substance: INSULIN HUMAN
     Indication: Diabetes mellitus
     Dosage: UNK

REACTIONS (9)
  - Pituitary tumour [Unknown]
  - Bell^s palsy [Unknown]
  - Cerebrovascular accident [Unknown]
  - Thrombosis [Unknown]
  - Tonsillectomy [Unknown]
  - Lumbar puncture [Unknown]
  - Cerebral disorder [Unknown]
  - Diplopia [Unknown]
  - IIIrd nerve disorder [Unknown]
